FAERS Safety Report 6969430-8 (Version None)
Quarter: 2010Q3

REPORT INFORMATION
  Report Type: 
  Country: None (occurrence: None)
  Receive Date: 20100907
  Receipt Date: 20100906
  Transmission Date: 20110219
  Serious: Yes (Hospitalization)
  Sender: FDA-Public Use
  Company Number: GB-AMGEN-KDC436241

PATIENT
  Sex: Male

DRUGS (10)
  1. VECTIBIX [Suspect]
     Indication: GASTROOESOPHAGEAL CANCER
     Dates: start: 20100729
  2. CAPECITABINE [Suspect]
     Dates: start: 20100729, end: 20100829
  3. EPIRUBICIN [Suspect]
     Dates: start: 20100729
  4. OXALIPLATIN [Suspect]
     Dates: start: 20100729
  5. ASPIRIN [Concomitant]
  6. GLICLAZIDE [Concomitant]
  7. RAMIPRIL [Concomitant]
     Dates: end: 20100829
  8. OMEPRAZOLE [Concomitant]
  9. SENNA [Concomitant]
     Dates: end: 20100829
  10. SIMVASTATIN [Concomitant]

REACTIONS (1)
  - FEBRILE NEUTROPENIA [None]
